FAERS Safety Report 23910721 (Version 1)
Quarter: 2024Q2

REPORT INFORMATION
  Report Type: Spontaneous
  Country: US (occurrence: US)
  Receive Date: 20240528
  Receipt Date: 20240528
  Transmission Date: 20240716
  Serious: No
  Sender: FDA-Public Use
  Company Number: US-BAYER-2024A076268

PATIENT
  Sex: Female

DRUGS (2)
  1. MIRALAX [Suspect]
     Active Substance: POLYETHYLENE GLYCOL 3350
     Indication: Gastrointestinal disorder
  2. DULCOLAX NOS [Suspect]
     Active Substance: BISACODYL\BISACODYL OR DOCUSATE SODIUM\DOCUSATE SODIUM

REACTIONS (1)
  - Labelled drug-drug interaction medication error [Unknown]
